FAERS Safety Report 8849782 (Version 5)
Quarter: 2013Q1

REPORT INFORMATION
  Report Type: Report from Study
  Country: FR (occurrence: FR)
  Receive Date: 20121019
  Receipt Date: 20130111
  Transmission Date: 20140127
  Serious: Yes (Hospitalization)
  Sender: FDA-Public Use
  Company Number: PHHO2012FR014981

PATIENT
  Age: 15 Year
  Sex: Female
  Weight: 37 kg

DRUGS (7)
  1. ACZ885 [Suspect]
     Indication: JUVENILE IDIOPATHIC ARTHRITIS
     Dosage: 4 MG/KG, UNK
     Route: 058
     Dates: start: 20121008
  2. PREDNISONE [Concomitant]
     Indication: JUVENILE IDIOPATHIC ARTHRITIS
     Dosage: 11 MG, DAILY
     Route: 048
     Dates: start: 20120925
  3. PREDNISONE [Concomitant]
     Dosage: 8 MG, DAILY
     Route: 048
     Dates: start: 201209
  4. CALCIDOSE VITAMINE D [Concomitant]
     Dosage: 500 MG, DAILY
  5. SOLACY [Concomitant]
     Dosage: UNK
  6. ALVITYL [Concomitant]
     Dosage: UNK
  7. IBUPROFEN [Concomitant]
     Indication: PAIN
     Dosage: 400 MG, UNK

REACTIONS (2)
  - Nervous system disorder [Recovered/Resolved]
  - Partial seizures [Recovered/Resolved]
